FAERS Safety Report 7551965-0 (Version None)
Quarter: 2011Q2

REPORT INFORMATION
  Report Type: 
  Country: None (occurrence: None)
  Receive Date: 20110616
  Receipt Date: 20110607
  Transmission Date: 20111010
  Serious: Yes (Hospitalization)
  Sender: FDA-Public Use
  Company Number: US-ASTRAZENECA-2010SE33724

PATIENT
  Age: 84 Year
  Sex: Female
  Weight: 74.8 kg

DRUGS (8)
  1. ASPIRIN [Concomitant]
  2. XANAX [Concomitant]
  3. PRILOSEC [Concomitant]
  4. HYDROCHLOROTHIAZIDE [Concomitant]
  5. SEROQUEL [Suspect]
     Indication: SLEEP DISORDER
     Route: 048
     Dates: start: 20060101
  6. ALPRAZOLAM [Concomitant]
  7. VYTORIN [Concomitant]
  8. LOTENSIN [Concomitant]

REACTIONS (7)
  - LYMPHADENECTOMY [None]
  - ROAD TRAFFIC ACCIDENT [None]
  - PAIN IN EXTREMITY [None]
  - INTENTIONAL DRUG MISUSE [None]
  - HIP SURGERY [None]
  - SLEEP DISORDER [None]
  - DRUG INEFFECTIVE FOR UNAPPROVED INDICATION [None]
